FAERS Safety Report 4299906-6 (Version None)
Quarter: 2004Q1

REPORT INFORMATION
  Report Type: 
  Country: None (occurrence: None)
  Receive Date: 20040219
  Receipt Date: 20040219
  Transmission Date: 20041129
  Serious: Yes (Hospitalization)
  Sender: FDA-Public Use
  Company Number: None

PATIENT
  Age: 71 Year
  Sex: Male
  Weight: 114.3065 kg

DRUGS (9)
  1. WARFARIN SODIUM [Suspect]
     Indication: ATRIAL FIBRILLATION
     Dosage: 1 PO QD
     Route: 048
  2. FELODIPINE [Concomitant]
  3. FOSINOPRIL SODIUM [Concomitant]
  4. HYDROCHLOROTHIAZIDE [Concomitant]
  5. GLYBURIDE [Concomitant]
  6. INSULIN [Concomitant]
  7. METFORMIN HCL [Concomitant]
  8. METOPROLOL [Concomitant]
  9. RANITIDINE [Concomitant]

REACTIONS (4)
  - DIZZINESS [None]
  - FAECES DISCOLOURED [None]
  - HELICOBACTER INFECTION [None]
  - ULCER [None]
